FAERS Safety Report 17969703 (Version 17)
Quarter: 2022Q1

REPORT INFORMATION
  Report Type: Spontaneous
  Country: US (occurrence: US)
  Receive Date: 20200701
  Receipt Date: 20220307
  Transmission Date: 20220423
  Serious: Yes (Hospitalization, Other)
  Sender: FDA-Public Use
  Company Number: US-GLAXOSMITHKLINE-US2020AMR115185

PATIENT
  Age: 64 Year
  Sex: Female

DRUGS (11)
  1. ZEJULA [Suspect]
     Active Substance: NIRAPARIB
     Indication: Ovarian cancer
     Dosage: 300 MG, QD
     Route: 048
     Dates: start: 20200618
  2. ZEJULA [Suspect]
     Active Substance: NIRAPARIB
     Dosage: 200 MG, QD
     Route: 048
     Dates: start: 20200706
  3. ZEJULA [Suspect]
     Active Substance: NIRAPARIB
     Dosage: 200 MG, QD
  4. ZEJULA [Suspect]
     Active Substance: NIRAPARIB
     Dosage: 200 MG, QD
  5. ZEJULA [Suspect]
     Active Substance: NIRAPARIB
     Dosage: 200 MG, QD
  6. ZEJULA [Suspect]
     Active Substance: NIRAPARIB
     Dosage: 200 MG, QD
  7. ZEJULA [Suspect]
     Active Substance: NIRAPARIB
     Dosage: 200 MG, QD
     Dates: end: 20220302
  8. ELIQUIS [Suspect]
     Active Substance: APIXABAN
     Indication: Thrombosis
     Dosage: UNK UNK, BID
  9. ONDANSETRON HYDROCHLORIDE [Concomitant]
     Active Substance: ONDANSETRON HYDROCHLORIDE
     Indication: Nausea
     Dosage: UNK
  10. DOXYCYCLINE HYCLATE [Concomitant]
     Active Substance: DOXYCYCLINE HYCLATE
     Indication: Product used for unknown indication
     Dosage: UNK
  11. LOSARTAN [Concomitant]
     Active Substance: LOSARTAN
     Indication: Product used for unknown indication
     Dosage: UNK

REACTIONS (15)
  - Haemoglobin decreased [Not Recovered/Not Resolved]
  - COVID-19 [Unknown]
  - Thrombosis [Unknown]
  - Vomiting [Recovered/Resolved]
  - Nausea [Recovering/Resolving]
  - Tremor [Not Recovered/Not Resolved]
  - Platelet count decreased [Unknown]
  - Constipation [Not Recovered/Not Resolved]
  - Headache [Unknown]
  - Eye allergy [Unknown]
  - Stress [Unknown]
  - Flatulence [Unknown]
  - Road traffic accident [Unknown]
  - Pain [Unknown]
  - Hypertension [Unknown]

NARRATIVE: CASE EVENT DATE: 20210501
